FAERS Safety Report 8049261-0 (Version None)
Quarter: 2012Q1

REPORT INFORMATION
  Report Type: 
  Country: None (occurrence: None)
  Receive Date: 20120117
  Receipt Date: 20120113
  Transmission Date: 20120608
  Serious: Yes (Death)
  Sender: FDA-Public Use
  Company Number: US-ELI_LILLY_AND_COMPANY-US201201004051

PATIENT
  Sex: Male

DRUGS (11)
  1. CYMBALTA [Suspect]
     Dosage: 60 MG, QD
     Dates: start: 20110301
  2. LISINOPRIL                              /USA/ [Concomitant]
  3. PROTONIX [Concomitant]
  4. ADVAIR DISKUS 100/50 [Concomitant]
  5. ZOFRAN [Concomitant]
  6. KLONOPIN [Concomitant]
  7. VENTOLIN [Concomitant]
  8. OXYCONTIN [Concomitant]
  9. PERCOCET [Concomitant]
  10. LUNESTA [Concomitant]
  11. COREG CR [Concomitant]

REACTIONS (1)
  - DEATH [None]
